FAERS Safety Report 10234878 (Version 1)
Quarter: 2014Q1

REPORT INFORMATION
  Report Type: Spontaneous
  Country: US (occurrence: None)
  Receive Date: 20140306
  Receipt Date: 20140306
  Transmission Date: 20141002
  Serious: Yes (Other)
  Sender: FDA-Public Use
  Company Number: 163-21880-13051794

PATIENT
  Age: 70 Year
  Sex: Male

DRUGS (5)
  1. REVLIMID (LENALIDOMIDE) (5 MILLIGRAM, CAPSULES) [Suspect]
     Indication: MYELODYSPLASTIC SYNDROME
     Route: 048
     Dates: start: 20130418
  2. MULTIVITAMINS (MULTIVITAMINS) [Concomitant]
  3. VITAMIN C (ASCORBIC ACID) [Concomitant]
  4. LYRICA (PREGABALIN) [Concomitant]
  5. GLUCOSAMINE/CHONDROITIN (GLUCOSAMINE W/CHONDROITIN SULFATE) [Concomitant]

REACTIONS (6)
  - Haemoglobin decreased [None]
  - Haematocrit decreased [None]
  - Platelet count decreased [None]
  - Anxiety [None]
  - Dry mouth [None]
  - Neuropathy peripheral [None]
